FAERS Safety Report 22051526 (Version 1)
Quarter: 2023Q1

REPORT INFORMATION
  Report Type: Other
  Country: None (occurrence: IN)
  Receive Date: 20230301
  Receipt Date: 20230301
  Transmission Date: 20230417
  Serious: Yes (Other)
  Sender: FDA-Public Use
  Company Number: IN-OrBion Pharmaceuticals Private Limited-2138611

PATIENT
  Age: 43 Year
  Sex: Male

DRUGS (1)
  1. DIVALPROEX SODIUM [Suspect]
     Active Substance: DIVALPROEX SODIUM
     Indication: Seizure
     Route: 065

REACTIONS (1)
  - Eosinophilic pleural effusion [Recovered/Resolved]
